FAERS Safety Report 4709594-X (Version None)
Quarter: 2005Q3

REPORT INFORMATION
  Report Type: 
  Country: None (occurrence: None)
  Receive Date: 20050706
  Receipt Date: 20050701
  Transmission Date: 20060218
  Serious: Yes (Hospitalization)
  Sender: FDA-Public Use
  Company Number: 200512035GDS

PATIENT
  Age: 11 Year
  Sex: Female
  Weight: 54 kg

DRUGS (2)
  1. BILTRICIDE [Suspect]
     Dosage: 600 MG, TOTAL DAILY, ORAL
     Route: 048
     Dates: start: 20050505, end: 20050526
  2. TEGRETOL [Suspect]
     Dosage: BID,ORAL
     Route: 048
     Dates: start: 20050505, end: 20050526

REACTIONS (2)
  - DERMATITIS ACNEIFORM [None]
  - DRUG ERUPTION [None]
